FAERS Safety Report 10982873 (Version 1)
Quarter: 2015Q2

REPORT INFORMATION
  Report Type: Spontaneous
  Country: US (occurrence: None)
  Receive Date: 20150401
  Receipt Date: 20150401
  Transmission Date: 20150821
  Serious: Yes (Other)
  Sender: FDA-Public Use
  Company Number: FK201501444

PATIENT
  Sex: Female

DRUGS (4)
  1. BUPIVACAINE (MANUFACTURER UNKNOWN) (BUPIVACAINE) (BUPIVACAINE) [Suspect]
     Active Substance: BUPIVACAINE
     Indication: ANALGESIC THERAPY
     Dosage: 4 ML, BOLUSED, EPIDURAL
     Route: 008
  2. PHENYLEPHRINE [Concomitant]
     Active Substance: PHENYLEPHRINE\PHENYLEPHRINE HYDROCHLORIDE
  3. OXYTOCIN. [Concomitant]
     Active Substance: OXYTOCIN
  4. FENTANYL. [Suspect]
     Active Substance: FENTANYL
     Indication: ANALGESIC THERAPY
     Route: 008

REACTIONS (8)
  - Horner^s syndrome [None]
  - Exposure during pregnancy [None]
  - Hypotension [None]
  - Anaesthetic complication [None]
  - Paraesthesia [None]
  - Tachycardia [None]
  - Dyspnoea [None]
  - Eyelid ptosis [None]
